FAERS Safety Report 15478010 (Version 1)
Quarter: 2018Q4

REPORT INFORMATION
  Report Type: Spontaneous
  Country: US (occurrence: US)
  Receive Date: 20181002
  Receipt Date: 20181002
  Transmission Date: 20190205
  Serious: No
  Sender: FDA-Public Use
  Company Number: None

PATIENT
  Age: 81 Year
  Sex: Female

DRUGS (3)
  1. SUTENT [Suspect]
     Active Substance: SUNITINIB MALATE
     Indication: GASTROINTESTINAL STROMAL TUMOUR
     Dosage: ?          OTHER FREQUENCY:1 DAILY FOR2WKS;?
     Route: 048
     Dates: start: 20171117
  2. SUTENT [Suspect]
     Active Substance: SUNITINIB MALATE
     Indication: SOFT TISSUE SARCOMA
     Dosage: ?          OTHER FREQUENCY:1 DAILY FOR2WKS;?
     Route: 048
     Dates: start: 20171117
  3. SUTENT [Suspect]
     Active Substance: SUNITINIB MALATE
     Indication: MALIGNANT RESPIRATORY TRACT NEOPLASM
     Dosage: ?          OTHER FREQUENCY:1 DAILY FOR2WKS;?
     Route: 048
     Dates: start: 20171117

REACTIONS (2)
  - Ocular hyperaemia [None]
  - Pain in extremity [None]

NARRATIVE: CASE EVENT DATE: 201809
